FAERS Safety Report 10102035 (Version 1)
Quarter: 2014Q2

REPORT INFORMATION
  Report Type: Spontaneous
  Country: CA (occurrence: CA)
  Receive Date: 20140424
  Receipt Date: 20140424
  Transmission Date: 20141212
  Serious: Yes (Other)
  Sender: FDA-Public Use
  Company Number: CA-ROCHE-1388421

PATIENT
  Age: 66 Year
  Sex: Male

DRUGS (6)
  1. XELODA [Suspect]
     Indication: PRODUCT USED FOR UNKNOWN INDICATION
     Dosage: THERAPY DURATION:  3.0 MONTH(S)
     Route: 065
  2. HERCEPTIN [Suspect]
     Indication: PRODUCT USED FOR UNKNOWN INDICATION
     Dosage: VIALS
     Route: 042
  3. TAXOTERE [Suspect]
     Indication: PRODUCT USED FOR UNKNOWN INDICATION
     Dosage: THERAPY DURATION:  3.0 MONTH(S)
     Route: 042
  4. AVALIDE [Concomitant]
     Route: 065
  5. HYDROCORTISONE [Concomitant]
  6. PANTOLOC [Concomitant]
     Route: 065

REACTIONS (1)
  - Pulmonary embolism [Unknown]
